FAERS Safety Report 11826625 (Version 1)
Quarter: 2015Q4

REPORT INFORMATION
  Report Type: Report from Study
  Country: FR (occurrence: FR)
  Receive Date: 20151211
  Receipt Date: 20151211
  Transmission Date: 20160305
  Serious: Yes (Hospitalization, Other)
  Sender: FDA-Public Use
  Company Number: FR-BRISTOL-MYERS SQUIBB COMPANY-BMS-2015-060798

PATIENT
  Age: 69 Year
  Sex: Female
  Weight: 35 kg

DRUGS (1)
  1. NIVOLUMAB [Suspect]
     Active Substance: NIVOLUMAB
     Indication: NON-SMALL CELL LUNG CANCER
     Dosage: 105 MG, UNK
     Route: 065
     Dates: start: 20150717, end: 20151118

REACTIONS (7)
  - Neutrophil count increased [Unknown]
  - Lymphocyte count abnormal [Unknown]
  - Alanine aminotransferase abnormal [Unknown]
  - Platelet disorder [Unknown]
  - Cholestasis [Recovering/Resolving]
  - White blood cell count increased [Unknown]
  - Aspartate aminotransferase abnormal [Unknown]

NARRATIVE: CASE EVENT DATE: 20150812
